FAERS Safety Report 4379109-7 (Version None)
Quarter: 2004Q2

REPORT INFORMATION
  Report Type: 
  Country: None (occurrence: None)
  Receive Date: 20040610
  Receipt Date: 20040526
  Transmission Date: 20050107
  Serious: Yes (Life-Threatening)
  Sender: FDA-Public Use
  Company Number: IT-JNJFOC-20040506173

PATIENT
  Age: 83 Year
  Sex: Female

DRUGS (7)
  1. TOPIRAMATE [Suspect]
     Indication: DRUG USE FOR UNKNOWN INDICATION
     Dosage: 50 MG,  IN 1 DAY, ORAL
     Route: 048
     Dates: start: 20040121, end: 20040331
  2. TRAMADOL HCL [Concomitant]
  3. PARAFFINUM LIQUIDUM (PARAFFIN, LIQUID) [Concomitant]
  4. LORAZEPAM [Concomitant]
  5. ENAPREN (ENALAPRIL MALEATE) [Concomitant]
  6. FERRO GRAD (FERROUS SULFATE EXSICCATED) [Concomitant]
  7. AMITRIPTYLINE HYDROCHLORIDE [Concomitant]

REACTIONS (2)
  - LEUKOPENIA [None]
  - MONOCYTOSIS [None]
